FAERS Safety Report 16304733 (Version 7)
Quarter: 2020Q2

REPORT INFORMATION
  Report Type: Spontaneous
  Country: US (occurrence: US)
  Receive Date: 20190513
  Receipt Date: 20200430
  Transmission Date: 20200713
  Serious: No
  Sender: FDA-Public Use
  Company Number: US-BIOGEN-2019BI00736875

PATIENT
  Age: 62 Year
  Sex: Female

DRUGS (7)
  1. TECFIDERA [Suspect]
     Active Substance: DIMETHYL FUMARATE
     Dosage: TAKE 1 CAPSULE BY MOUTH TWICE A DAY
     Route: 048
     Dates: start: 20190507
  2. TECFIDERA [Suspect]
     Active Substance: DIMETHYL FUMARATE
     Indication: MULTIPLE SCLEROSIS
     Dosage: TAKE 1 CAPSULE BY MOUTH TWICE A DAY
     Route: 048
     Dates: start: 20190430, end: 20190507
  3. CRESTOR [Concomitant]
     Active Substance: ROSUVASTATIN CALCIUM
     Route: 065
  4. LEXAPRO [Concomitant]
     Active Substance: ESCITALOPRAM OXALATE
     Route: 065
  5. FOSAMAX [Concomitant]
     Active Substance: ALENDRONATE SODIUM
     Route: 065
  6. ASPIRIN. [Concomitant]
     Active Substance: ASPIRIN
     Indication: MULTIPLE SCLEROSIS
     Route: 065
  7. ADVIL [Concomitant]
     Active Substance: IBUPROFEN
     Route: 065

REACTIONS (16)
  - Fatigue [Not Recovered/Not Resolved]
  - Cognitive disorder [Recovered/Resolved]
  - Hot flush [Recovered/Resolved]
  - Abdominal discomfort [Recovered/Resolved]
  - Abdominal distension [Unknown]
  - Abdominal pain upper [Recovered/Resolved]
  - Pain [Not Recovered/Not Resolved]
  - Feeling abnormal [Not Recovered/Not Resolved]
  - Sensory disturbance [Recovered/Resolved]
  - Gastrointestinal sounds abnormal [Recovered/Resolved]
  - Urticaria [Recovered/Resolved with Sequelae]
  - Flushing [Recovered/Resolved with Sequelae]
  - Rash [Recovered/Resolved]
  - Product dose omission [Unknown]
  - Asthenia [Unknown]
  - Burning sensation [Recovered/Resolved]

NARRATIVE: CASE EVENT DATE: 20190430
